FAERS Safety Report 5576014-5 (Version None)
Quarter: 2007Q4

REPORT INFORMATION
  Report Type: 
  Country: None (occurrence: None)
  Receive Date: 20071226
  Receipt Date: 20071211
  Transmission Date: 20080405
  Serious: Yes (Other)
  Sender: FDA-Public Use
  Company Number: GXKR2007GB10642

PATIENT
  Age: 70 Year
  Sex: Male

DRUGS (13)
  1. AZATHIOPRINE [Suspect]
  2. WARARIN (NGX)(WARFARIN) UNKNOWN [Suspect]
  3. TRACLEER [Suspect]
     Indication: PULMONARY HYPERTENSION
     Dosage: 62.5 MG, BID, ORAL, 125 MG, BID, ORAL
     Route: 048
     Dates: start: 20060823
  4. TRACLEER [Suspect]
     Indication: PULMONARY HYPERTENSION
     Dosage: 62.5 MG, BID, ORAL, 125 MG, BID, ORAL
     Route: 048
     Dates: start: 20060901
  5. ALENDRONATE SODIUM [Concomitant]
  6. CALCICOL D3 (COLECALCIFEROL, CALCIUM CARBONATE) [Concomitant]
  7. DIGOXIN [Concomitant]
  8. FUROSEMIDE [Concomitant]
  9. RAMIPRIL [Concomitant]
  10. SALBUTAMOL (SALBUTAMOL) [Concomitant]
  11. SPIRONOLACTONE [Concomitant]
  12. TIOTROPIUM BROMIDE (TIOTROPIUM BROMIDE) [Concomitant]
  13. PREDNISONE [Concomitant]

REACTIONS (1)
  - ANAEMIA [None]
